FAERS Safety Report 18268629 (Version 1)
Quarter: 2020Q3

REPORT INFORMATION
  Report Type: Spontaneous
  Country: US (occurrence: US)
  Receive Date: 20200915
  Receipt Date: 20200915
  Transmission Date: 20201103
  Serious: No
  Sender: FDA-Public Use
  Company Number: US-PERRIGO-20US002607

PATIENT
  Age: 65 Year
  Sex: Female
  Weight: 45.35 kg

DRUGS (3)
  1. CELEBREX [Concomitant]
     Active Substance: CELECOXIB
     Indication: INTERVERTEBRAL DISC DEGENERATION
     Dosage: UNK, QD
     Route: 048
  2. MINOXIDIL. [Suspect]
     Active Substance: MINOXIDIL
     Indication: ALOPECIA
     Dosage: UNK, QD
     Route: 061
     Dates: start: 201912, end: 202001
  3. MULTIVITAMINS                      /07504101/ [Concomitant]
     Active Substance: VITAMINS
     Indication: SUPPLEMENTATION THERAPY
     Dosage: UNKNOWN, UNKNOWN
     Route: 065

REACTIONS (3)
  - Alopecia [Recovered/Resolved]
  - Inappropriate schedule of product administration [Recovered/Resolved]
  - Trichorrhexis [Unknown]

NARRATIVE: CASE EVENT DATE: 201912
